FAERS Safety Report 23572170 (Version 2)
Quarter: 2025Q2

REPORT INFORMATION
  Report Type: Spontaneous
  Country: US (occurrence: US)
  Receive Date: 20240227
  Receipt Date: 20250510
  Transmission Date: 20250716
  Serious: No
  Sender: SANOFI AVENTIS
  Company Number: US-SANOFI-01954813

PATIENT
  Age: 67 Year
  Sex: Female

DRUGS (2)
  1. TOUJEO [Suspect]
     Active Substance: INSULIN GLARGINE
     Indication: Type 1 diabetes mellitus
  2. ADMELOG [Concomitant]
     Active Substance: INSULIN LISPRO
     Dosage: 3 TO 4 UNITS WITH BREAKFAST AND 4 TO 6 UNITS WITH LUNCH AND SUPPER
     Route: 065
     Dates: start: 2020

REACTIONS (1)
  - Weight increased [Unknown]

NARRATIVE: CASE EVENT DATE: 20200701
